FAERS Safety Report 4745432-7 (Version None)
Quarter: 2005Q3

REPORT INFORMATION
  Report Type: 
  Country: None (occurrence: None)
  Receive Date: 20050811
  Receipt Date: 20050802
  Transmission Date: 20060218
  Serious: Yes (Death, Hospitalization, Other)
  Sender: FDA-Public Use
  Company Number: 2005110388

PATIENT
  Age: 77 Year
  Sex: Female
  Weight: 81.6475 kg

DRUGS (6)
  1. CELEBREX [Suspect]
     Indication: ARTHRITIS
     Dosage: 200 MG (200 MG, 1 IN 1 D), ORAL
     Route: 048
     Dates: start: 19990301
  2. AMBIEN [Concomitant]
  3. DIOVAN (VALKSARTAN) [Concomitant]
  4. PREDNISONE [Concomitant]
  5. LORAZEPAM [Concomitant]
  6. DILTIAZEM  (DILTIASEM) [Concomitant]

REACTIONS (10)
  - FLUID RETENTION [None]
  - HEPATIC FAILURE [None]
  - LABORATORY TEST ABNORMAL [None]
  - MYOCARDIAL INFARCTION [None]
  - PNEUMONIA [None]
  - PULMONARY OEDEMA [None]
  - PULMONARY THROMBOSIS [None]
  - RENAL FAILURE [None]
  - SHOULDER PAIN [None]
  - UNEVALUABLE EVENT [None]
